FAERS Safety Report 7993727-6 (Version None)
Quarter: 2011Q4

REPORT INFORMATION
  Report Type: 
  Country: None (occurrence: None)
  Receive Date: 20111220
  Receipt Date: 20111215
  Transmission Date: 20120403
  Serious: Yes (Death, Hospitalization)
  Sender: FDA-Public Use
  Company Number: FR-BRISTOL-MYERS SQUIBB COMPANY-14951248

PATIENT
  Age: 63 Year
  Sex: Male

DRUGS (1)
  1. BELATACEPT [Suspect]
     Indication: RENAL TRANSPLANT
     Route: 042
     Dates: start: 20060407, end: 20091223

REACTIONS (4)
  - CYTOMEGALOVIRUS INFECTION [None]
  - ERYSIPELAS [None]
  - GASTRIC ULCER [None]
  - SHOCK HAEMORRHAGIC [None]
